FAERS Safety Report 4769861-0 (Version None)
Quarter: 2005Q3

REPORT INFORMATION
  Report Type: 
  Country: None (occurrence: None)
  Receive Date: 20050912
  Receipt Date: 20050719
  Transmission Date: 20060218
  Serious: No
  Sender: FDA-Public Use
  Company Number: 2005-01469

PATIENT
  Age: 63 Year
  Sex: Female
  Weight: 56.7 kg

DRUGS (6)
  1. VELCADE [Suspect]
     Indication: MULTIPLE MYELOMA
     Dates: start: 20050615
  2. UNSPECIFIED NARCOTIC MEDICATION [Concomitant]
  3. PAXIL [Concomitant]
  4. RESTORIL [Concomitant]
  5. LIPITOR [Concomitant]
  6. DARVOCET-N (PARACETAMOL, DEXTROPROPOXYPHENE NAPSILATE) [Concomitant]

REACTIONS (1)
  - CONSTIPATION [None]
